FAERS Safety Report 4927175-X (Version None)
Quarter: 2006Q1

REPORT INFORMATION
  Report Type: 
  Country: None (occurrence: None)
  Receive Date: 20060213
  Receipt Date: 20060130
  Transmission Date: 20060701
  Serious: Yes (Other)
  Sender: FDA-Public Use
  Company Number: 2006BH002017

PATIENT
  Age: 16 Year
  Sex: Male

DRUGS (5)
  1. FEIBA VH IMMUNO [Suspect]
     Indication: POST PROCEDURAL HAEMORRHAGE
     Dosage: 6300 UNITS; EVERY 8 HR; IV
     Route: 042
     Dates: start: 20000101, end: 20000101
  2. NOVOSEVEN [Suspect]
     Indication: HAEMORRHAGE
     Dosage: 100 UG/KG;
     Dates: start: 20000101, end: 20000101
  3. IMMUNE GLOBULIN INTRAVENOUS (HUMAN) [Concomitant]
  4. RITUXAN [Concomitant]
  5. FRESH FROZEN PLASMA [Concomitant]

REACTIONS (10)
  - CEREBRAL INFARCTION [None]
  - COAGULOPATHY [None]
  - EPISTAXIS [None]
  - HAEMATURIA [None]
  - HEADACHE [None]
  - ISCHAEMIC STROKE [None]
  - POST PROCEDURAL COMPLICATION [None]
  - POSTOPERATIVE WOUND COMPLICATION [None]
  - SUBDURAL HAEMATOMA [None]
  - WOUND HAEMORRHAGE [None]
